FAERS Safety Report 4901793-7 (Version None)
Quarter: 2006Q1

REPORT INFORMATION
  Report Type: 
  Country: None (occurrence: None)
  Receive Date: 20060202
  Receipt Date: 20060202
  Transmission Date: 20060701
  Serious: Yes (Life-Threatening, Hospitalization)
  Sender: FDA-Public Use
  Company Number: None

PATIENT
  Sex: Female
  Weight: 65.7716 kg

DRUGS (2)
  1. AVELOX [Suspect]
     Indication: ASTHMA
     Dosage: 400 MG 1 TABLET ORAL
     Route: 048
     Dates: start: 20060120
  2. AVELOX [Suspect]
     Indication: BRONCHITIS
     Dosage: 400 MG 1 TABLET ORAL
     Route: 048
     Dates: start: 20060120

REACTIONS (9)
  - BLOOD PRESSURE DECREASED [None]
  - DYSPHAGIA [None]
  - EYE DISORDER [None]
  - GENERALISED ERYTHEMA [None]
  - HEART RATE INCREASED [None]
  - OXYGEN SATURATION DECREASED [None]
  - PHARYNGEAL OEDEMA [None]
  - PRURITUS GENERALISED [None]
  - SWELLING FACE [None]
